FAERS Safety Report 24341192 (Version 3)
Quarter: 2024Q4

REPORT INFORMATION
  Report Type: Spontaneous
  Country: US (occurrence: US)
  Receive Date: 20240919
  Receipt Date: 20241001
  Transmission Date: 20250115
  Serious: No
  Sender: BAUSCH AND LOMB
  Company Number: US-BAUSCH-BL-2024-013917

PATIENT
  Age: 65 Year
  Sex: Female

DRUGS (1)
  1. JUBLIA [Suspect]
     Active Substance: EFINACONAZOLE
     Indication: Onychomycosis
     Route: 061
     Dates: start: 202408, end: 202409

REACTIONS (6)
  - Application site pruritus [Not Recovered/Not Resolved]
  - Gait disturbance [Unknown]
  - Sleep disorder [Not Recovered/Not Resolved]
  - Application site pain [Not Recovered/Not Resolved]
  - Application site vesicles [Not Recovered/Not Resolved]
  - Patient dissatisfaction with treatment [Unknown]

NARRATIVE: CASE EVENT DATE: 20240101
